FAERS Safety Report 4432680-9 (Version None)
Quarter: 2004Q3

REPORT INFORMATION
  Report Type: 
  Country: None (occurrence: None)
  Receive Date: 20040820
  Receipt Date: 20040806
  Transmission Date: 20050211
  Serious: Yes (Other)
  Sender: FDA-Public Use
  Company Number: 2004-DE-04328GD

PATIENT

DRUGS (4)
  1. NEVIRAPINE (NEVIRAPINE) [Suspect]
     Indication: HIV INFECTION
     Dosage: NR (NR, ONCE DAILY), NR
     Dates: start: 19970601
  2. METHADONE HCL [Suspect]
     Indication: DRUG WITHDRAWAL MAINTENANCE THERAPY
     Dosage: 150 MG (NR), NR
  3. LAMIVUDINE (LAMIVUDINE) [Suspect]
     Indication: HIV INFECTION
     Dosage: NR (NR, ONCE DAILY), NR
     Dates: start: 19970601
  4. DIDANOSINE (DIDANOSINE) [Suspect]
     Indication: HIV INFECTION
     Dosage: NR (NR, ONCE DAILY), NR
     Dates: start: 19970601

REACTIONS (2)
  - DRUG LEVEL DECREASED [None]
  - LIVER FUNCTION TEST ABNORMAL [None]
